FAERS Safety Report 8226462-X (Version None)
Quarter: 2012Q1

REPORT INFORMATION
  Report Type: 
  Country: None (occurrence: None)
  Receive Date: 20120322
  Receipt Date: 20120312
  Transmission Date: 20120608
  Serious: Yes (Hospitalization, Other)
  Sender: FDA-Public Use
  Company Number: US-ASTRAZENECA-2012SE17071

PATIENT
  Age: 64 Year
  Sex: Female

DRUGS (1)
  1. NEXIUM [Suspect]
     Route: 048

REACTIONS (6)
  - DISEASE RECURRENCE [None]
  - KYPHOSIS [None]
  - MALAISE [None]
  - DRUG DOSE OMISSION [None]
  - COELIAC DISEASE [None]
  - BONE DISORDER [None]
